FAERS Safety Report 12754107 (Version 2)
Quarter: 2025Q4

REPORT INFORMATION
  Report Type: Spontaneous
  Country: GB (occurrence: GB)
  Receive Date: 20160916
  Receipt Date: 20251226
  Transmission Date: 20260118
  Serious: Yes (Disabling, Other)
  Sender: AUROBINDO
  Company Number: GB-AUROBINDO-AUR-APL-2016-11286

PATIENT
  Age: 69 Year
  Sex: Female
  Weight: 60.77 kg

DRUGS (7)
  1. ATORVASTATIN [Suspect]
     Active Substance: ATORVASTATIN
     Indication: Blood cholesterol increased
     Dosage: 10MG TO 40MG
     Route: 061
     Dates: start: 20141019, end: 20160819
  2. PRAVASTATIN [Suspect]
     Active Substance: PRAVASTATIN
     Indication: Blood cholesterol increased
     Dosage: UNK 10MG TO 40MG)
     Route: 061
     Dates: start: 20141019, end: 20160819
  3. ROSUVASTATIN [Suspect]
     Active Substance: ROSUVASTATIN
     Indication: Blood cholesterol increased
     Dosage: UNK (10MG TO 40MG)
     Route: 061
     Dates: start: 20141019, end: 20160819
  4. CLOFIBRATE [Suspect]
     Active Substance: CLOFIBRATE
     Indication: Blood cholesterol increased
     Dosage: UNK (10MG TO 40MG)
     Route: 061
     Dates: start: 20141019, end: 20160819
  5. CLOFIBRATE [Suspect]
     Active Substance: CLOFIBRATE
     Indication: Blood cholesterol increased
  6. EZETIMIBE [Suspect]
     Active Substance: EZETIMIBE
     Indication: Blood cholesterol increased
     Dosage: UNK (10MG TO 40MG)
     Route: 061
     Dates: start: 20141019, end: 20160819
  7. IBUPROFEN [Concomitant]
     Active Substance: IBUPROFEN
     Indication: Product used for unknown indication
     Dosage: UNK
     Route: 065

REACTIONS (2)
  - Pain [Not Recovered/Not Resolved]
  - Arthropathy [Unknown]

NARRATIVE: CASE EVENT DATE: 20141031
